FAERS Safety Report 21094176 (Version 2)
Quarter: 2022Q3

REPORT INFORMATION
  Report Type: Report from Study
  Country: US (occurrence: US)
  Receive Date: 20220718
  Receipt Date: 20220922
  Transmission Date: 20221026
  Serious: Yes (Other)
  Sender: FDA-Public Use
  Company Number: US-NOVARTISPH-NVSC2022US159186

PATIENT
  Sex: Female

DRUGS (1)
  1. COSENTYX [Suspect]
     Active Substance: SECUKINUMAB
     Indication: Ankylosing spondylitis
     Dosage: UNK
     Route: 065

REACTIONS (3)
  - SARS-CoV-2 test positive [Not Recovered/Not Resolved]
  - Fatigue [Unknown]
  - Rhinorrhoea [Unknown]
